FAERS Safety Report 24075956 (Version 4)
Quarter: 2024Q4

REPORT INFORMATION
  Report Type: Spontaneous
  Country: JP (occurrence: JP)
  Receive Date: 20240710
  Receipt Date: 20241015
  Transmission Date: 20250115
  Serious: Yes (Life-Threatening)
  Sender: EISAI
  Company Number: JP-Eisai-202404502_DVG_P_1

PATIENT
  Age: 19 Year
  Sex: Male

DRUGS (16)
  1. DAYVIGO [Suspect]
     Active Substance: LEMBOREXANT
     Indication: Insomnia
     Dosage: AS NEEDED
     Route: 050
     Dates: start: 20240412, end: 20240412
  2. DAYVIGO [Suspect]
     Active Substance: LEMBOREXANT
     Dosage: AS NEEDED
     Route: 050
     Dates: start: 20240507, end: 20240507
  3. DAYVIGO [Suspect]
     Active Substance: LEMBOREXANT
     Dosage: AS NEEDED
     Route: 050
     Dates: start: 20240528, end: 20240529
  4. FYCOMPA [Concomitant]
     Active Substance: PERAMPANEL
     Indication: Epilepsy
     Dosage: BEFORE BEDTIME
     Route: 048
  5. FYCOMPA [Concomitant]
     Active Substance: PERAMPANEL
     Indication: Product used for unknown indication
     Dosage: BEFORE BEDTIME
     Route: 048
  6. FYCOMPA [Concomitant]
     Active Substance: PERAMPANEL
     Dosage: BEFORE BEDTIME
     Route: 048
  7. ROZEREM [Concomitant]
     Active Substance: RAMELTEON
     Indication: Insomnia
     Dosage: DOSE AND FREQUENCY UNKNOWN
  8. PHENOBARBITAL [Concomitant]
     Active Substance: PHENOBARBITAL
     Indication: Epilepsy
  9. VIMPAT [Concomitant]
     Active Substance: LACOSAMIDE
     Indication: Epilepsy
     Route: 065
  10. CARBOCYSTEINE [Concomitant]
     Active Substance: CARBOCYSTEINE
     Indication: Product used for unknown indication
     Route: 065
  11. MUCOSAL [Concomitant]
     Indication: Product used for unknown indication
     Route: 065
  12. MOVICOL [Concomitant]
     Active Substance: POLYETHYLENE GLYCOL 3350\POTASSIUM CHLORIDE\SODIUM BICARBONATE\SODIUM CHLORIDE
     Indication: Product used for unknown indication
     Dosage: DOSAGE UNKNOWN
     Route: 065
  13. VALPROATE SODIUM [Concomitant]
     Active Substance: VALPROATE SODIUM
     Indication: Epilepsy
     Route: 065
     Dates: end: 20240528
  14. VALPROATE SODIUM [Concomitant]
     Active Substance: VALPROATE SODIUM
     Route: 065
     Dates: start: 20240529
  15. YOKUKANSANKACHIMPIHANGE [Concomitant]
     Indication: Product used for unknown indication
     Dosage: DOSE AND FREQUENCY UNKNOWN
     Route: 065
  16. KAMIKIHITO [Concomitant]
     Indication: Product used for unknown indication
     Dosage: DOSE AND FREQUENCY UNKNOWN

REACTIONS (8)
  - Respiratory arrest [Recovered/Resolved]
  - Off label use [Recovered/Resolved]
  - Off label use [Recovered/Resolved]
  - Drug ineffective [Unknown]
  - Myoclonic epilepsy [Unknown]
  - Muscle tightness [Unknown]
  - Tic [Unknown]
  - Somnolence [Unknown]

NARRATIVE: CASE EVENT DATE: 20240101
